FAERS Safety Report 4998307-2 (Version None)
Quarter: 2006Q2

REPORT INFORMATION
  Report Type: 
  Country: None (occurrence: None)
  Receive Date: 20060508
  Receipt Date: 20060424
  Transmission Date: 20061013
  Serious: Yes (Hospitalization)
  Sender: FDA-Public Use
  Company Number: 2006SP001840

PATIENT
  Age: 53 Year
  Sex: Female

DRUGS (6)
  1. LUNESTA [Suspect]
     Indication: INSOMNIA
     Dosage: 270 MG; 1X; ORAL;  3 MG; ORAL
     Route: 048
     Dates: start: 20050101, end: 20060301
  2. LUNESTA [Suspect]
     Indication: INSOMNIA
     Dosage: 270 MG; 1X; ORAL;  3 MG; ORAL
     Route: 048
     Dates: start: 20060313, end: 20060313
  3. PROZAC [Concomitant]
  4. WELLBUTRIN [Concomitant]
  5. TRAZODONE HCL [Concomitant]
  6. LORAZEPAM [Concomitant]

REACTIONS (3)
  - ALCOHOL USE [None]
  - MULTIPLE DRUG OVERDOSE INTENTIONAL [None]
  - SUICIDE ATTEMPT [None]
